FAERS Safety Report 9490802 (Version 1)
Quarter: 2013Q3

REPORT INFORMATION
  Report Type: Report from Study
  Country: US (occurrence: US)
  Receive Date: 20130830
  Receipt Date: 20130830
  Transmission Date: 20140515
  Serious: Yes (Death, Hospitalization, Other)
  Sender: FDA-Public Use
  Company Number: US-GENZYME-CLOF-1002764

PATIENT
  Age: 73 Year
  Sex: Female
  Weight: 58.1 kg

DRUGS (1)
  1. CLOLAR [Suspect]
     Indication: ACUTE MYELOID LEUKAEMIA
     Dosage: 49.2 MG, QD, 3 DOSES
     Route: 042
     Dates: start: 20130707, end: 20130709

REACTIONS (9)
  - Death [Fatal]
  - Acute respiratory distress syndrome [Not Recovered/Not Resolved]
  - Myocardial infarction [Unknown]
  - Cardiac failure [Unknown]
  - Blast cells [Unknown]
  - Bacterial sepsis [Not Recovered/Not Resolved]
  - Bacterial test positive [Unknown]
  - Pneumonia bacterial [Unknown]
  - Transaminases increased [Unknown]
